FAERS Safety Report 11622971 (Version 1)
Quarter: 2015Q4

REPORT INFORMATION
  Report Type: Spontaneous
  Country: US (occurrence: US)
  Receive Date: 20151013
  Receipt Date: 20151013
  Transmission Date: 20160304
  Serious: No
  Sender: FDA-Public Use
  Company Number: US-JNJFOC-20150202330

PATIENT
  Age: 71 Year
  Sex: Female
  Weight: 54.43 kg

DRUGS (5)
  1. COUMADIN [Concomitant]
     Active Substance: WARFARIN SODIUM
     Indication: THROMBOSIS
     Dosage: FOR 6 DAYS
     Route: 065
  2. SIMVASTATIN. [Concomitant]
     Active Substance: SIMVASTATIN
     Indication: BLOOD CHOLESTEROL INCREASED
     Route: 065
  3. COUMADIN [Concomitant]
     Active Substance: WARFARIN SODIUM
     Indication: THROMBOSIS
     Dosage: FOR 1 DAY
     Route: 065
  4. RAMIPRIL. [Concomitant]
     Active Substance: RAMIPRIL
     Indication: HYPERTENSION
     Route: 065
  5. TYLENOL EXTRA STRENGTH [Suspect]
     Active Substance: ACETAMINOPHEN
     Indication: RHINORRHOEA
     Dosage: ONE CAPLET EVERY 4-5 HOURS
     Route: 048
     Dates: start: 20150129

REACTIONS (5)
  - Therapeutic response decreased [Unknown]
  - Incorrect dose administered [Unknown]
  - Contraindicated drug administered [Unknown]
  - Product use issue [Unknown]
  - Product packaging issue [Unknown]
